FAERS Safety Report 4897853-X (Version None)
Quarter: 2006Q1

REPORT INFORMATION
  Report Type: 
  Country: None (occurrence: None)
  Receive Date: 20060201
  Receipt Date: 20051003
  Transmission Date: 20060701
  Serious: Yes (Hospitalization)
  Sender: FDA-Public Use
  Company Number: JP-JPN-A20052348

PATIENT
  Age: 67 Year
  Sex: Male
  Weight: 65 kg

DRUGS (14)
  1. ZYLORIC [Suspect]
     Indication: HYPERURICAEMIA
     Dosage: 100MG PER DAY
     Route: 048
     Dates: start: 20050831, end: 20050930
  2. AMARYL [Suspect]
     Indication: DIABETES MELLITUS
     Dosage: 1MG PER DAY
     Route: 048
     Dates: start: 20050416
  3. BASEN [Suspect]
     Indication: DIABETES MELLITUS
     Dosage: .2MG THREE TIMES PER DAY
     Route: 048
     Dates: start: 20050416
  4. LASIX [Suspect]
     Indication: CARDIAC FAILURE
     Dosage: 20MG PER DAY
     Route: 048
     Dates: start: 20050406, end: 20050930
  5. ALDACTONE [Suspect]
     Indication: CARDIAC FAILURE
     Dosage: 25MG PER DAY
     Route: 048
     Dates: start: 20050406, end: 20050930
  6. DIOVAN [Suspect]
     Indication: HYPERTENSION
     Dosage: 80MG TWICE PER DAY
     Route: 048
     Dates: start: 20050406, end: 20050930
  7. ARTIST [Suspect]
     Indication: HYPERTENSION
     Dosage: 2.5MG TWICE PER DAY
     Route: 048
     Dates: start: 20050412, end: 20050930
  8. ADALAT [Suspect]
     Indication: HYPERTENSION
     Dosage: 20MG TWICE PER DAY
     Route: 048
     Dates: start: 20050429
  9. LOXONIN [Suspect]
     Indication: PERIARTHRITIS
     Dosage: 60MG TWICE PER DAY
     Route: 048
     Dates: start: 20050913
  10. APLACE [Suspect]
     Indication: PERIARTHRITIS
     Dosage: 100MG TWICE PER DAY
     Route: 048
     Dates: start: 20050913
  11. CRAVIT [Suspect]
     Indication: BRONCHITIS
     Dosage: 100MG THREE TIMES PER DAY
     Route: 048
     Dates: start: 20050911, end: 20050913
  12. VOLTAREN [Suspect]
     Indication: BRONCHITIS
     Dosage: 25MG PER DAY
     Route: 054
  13. YAKUBAN [Suspect]
     Indication: PERIARTHRITIS
     Route: 062
  14. CLARITHROMYCIN [Suspect]
     Indication: BRONCHITIS
     Dosage: 200MG TWICE PER DAY
     Route: 048
     Dates: start: 20050913, end: 20050915

REACTIONS (24)
  - APHTHOUS STOMATITIS [None]
  - ASPARTATE AMINOTRANSFERASE DECREASED [None]
  - BLOOD CREATININE DECREASED [None]
  - BLOOD CREATININE INCREASED [None]
  - BLOOD GLUCOSE INCREASED [None]
  - BLOOD LACTATE DEHYDROGENASE INCREASED [None]
  - BLOOD UREA INCREASED [None]
  - BRONCHITIS [None]
  - EOSINOPHIL COUNT INCREASED [None]
  - EYE DISCHARGE [None]
  - FLUSHING [None]
  - HAEMOGLOBIN DECREASED [None]
  - HEADACHE [None]
  - MALAISE [None]
  - OCULAR HYPERAEMIA [None]
  - ORAL INTAKE REDUCED [None]
  - ORAL MUCOSA EROSION [None]
  - ORAL MUCOSAL ERUPTION [None]
  - PRURITUS [None]
  - PYREXIA [None]
  - RASH [None]
  - STEVENS-JOHNSON SYNDROME [None]
  - SWELLING FACE [None]
  - WHITE BLOOD CELL COUNT INCREASED [None]
